FAERS Safety Report 6576590-X (Version None)
Quarter: 2010Q1

REPORT INFORMATION
  Report Type: 
  Country: None (occurrence: None)
  Receive Date: 20100210
  Receipt Date: 20100129
  Transmission Date: 20100710
  Serious: Yes (Other)
  Sender: FDA-Public Use
  Company Number: PHEH2007US04447

PATIENT
  Sex: Female

DRUGS (5)
  1. AREDIA [Suspect]
     Indication: BONE NEOPLASM MALIGNANT
     Dosage: UNK
     Dates: end: 20050101
  2. AREDIA [Suspect]
     Indication: MULTIPLE MYELOMA
  3. IRON [Concomitant]
  4. CLINDA [Concomitant]
  5. CEPHALEXIN [Concomitant]

REACTIONS (17)
  - ACTINOMYCOSIS [None]
  - ANXIETY [None]
  - BONE DISORDER [None]
  - DEFORMITY [None]
  - EMOTIONAL DISTRESS [None]
  - GINGIVAL BLEEDING [None]
  - GINGIVAL PAIN [None]
  - HYPOAESTHESIA FACIAL [None]
  - HYPOPHAGIA [None]
  - INFECTION [None]
  - OSTEOMYELITIS [None]
  - OSTEONECROSIS [None]
  - PAIN [None]
  - SEQUESTRECTOMY [None]
  - SKIN LESION [None]
  - SURGERY [None]
  - SWELLING [None]
